FAERS Safety Report 25535051 (Version 1)
Quarter: 2025Q3

REPORT INFORMATION
  Report Type: Spontaneous
  Country: EU (occurrence: EU)
  Receive Date: 20250709
  Receipt Date: 20250709
  Transmission Date: 20251021
  Serious: Yes (Other)
  Sender: UCB
  Company Number: EU-UCBSA-2025040955

PATIENT
  Age: 57 Year
  Sex: Male

DRUGS (1)
  1. BIMZELX [Suspect]
     Active Substance: BIMEKIZUMAB-BKZX
     Indication: Hidradenitis
     Dates: end: 20250621

REACTIONS (2)
  - Dermal cyst [Unknown]
  - Skin cyst excision [Unknown]

NARRATIVE: CASE EVENT DATE: 20250701
